FAERS Safety Report 8771297 (Version 4)
Quarter: 2012Q4

REPORT INFORMATION
  Report Type: 
  Country: US (occurrence: US)
  Receive Date: 20120906
  Receipt Date: 20120928
  Transmission Date: 20130627
  Serious: Yes (Other)
  Sender: FDA-Public Use
  Company Number: PHEH2012US016839

PATIENT
  Age: 52 None
  Sex: Female

DRUGS (10)
  1. GILENYA [Suspect]
     Dosage: 0.5 mg, QD
     Route: 048
     Dates: start: 20110302, end: 20110825
  2. ZYRTEC [Concomitant]
     Dosage: 10 mg, UNK
  3. DRISDOL [Concomitant]
     Dosage: 50000 U, UNK
  4. NEURONTIN [Concomitant]
     Dosage: 300 mg, UNK
  5. ESTRACE [Concomitant]
     Dosage: 2 mg, UNK
  6. ULTRAM [Concomitant]
     Dosage: 50 mg, UNK
  7. KLONOPIN [Concomitant]
     Dosage: 2 mg, UNK
  8. SYNTHROID [Concomitant]
     Dosage: 200 ug, UNK
  9. DITROPAN [Concomitant]
     Dosage: 5 mg, UNK
  10. DICLOFENAC POTASSIUM [Concomitant]
     Dosage: 50 mg, UNK

REACTIONS (8)
  - Mycosis fungoides stage II [Recovering/Resolving]
  - Pain of skin [Unknown]
  - Rash [Unknown]
  - Skin irritation [Unknown]
  - Lymphadenopathy [Unknown]
  - Rash erythematous [Unknown]
  - Eczema [Unknown]
  - Lymphocytosis [Unknown]
